FAERS Safety Report 18503898 (Version 4)
Quarter: 2020Q4

REPORT INFORMATION
  Report Type: Spontaneous
  Country: FR (occurrence: FR)
  Receive Date: 20201114
  Receipt Date: 20201207
  Transmission Date: 20210114
  Serious: Yes (Other)
  Sender: FDA-Public Use
  Company Number: FR-TAKEDA-2020TJP024958

PATIENT
  Age: 78 Year
  Sex: Female

DRUGS (1)
  1. LANZOR [Suspect]
     Active Substance: LANSOPRAZOLE
     Indication: PRODUCT USED FOR UNKNOWN INDICATION
     Dosage: UNK
     Route: 048
     Dates: start: 20200909

REACTIONS (29)
  - Urticaria [Unknown]
  - Pain in extremity [Unknown]
  - Haemorrhoids [Unknown]
  - Paraesthesia [Unknown]
  - Hyperhidrosis [Unknown]
  - Pruritus [Unknown]
  - Diarrhoea haemorrhagic [Unknown]
  - Pain [Unknown]
  - Haematoma [Unknown]
  - Oropharyngeal pain [Unknown]
  - Exostosis [Unknown]
  - Flatulence [Unknown]
  - Fatigue [Unknown]
  - Urine abnormality [Unknown]
  - Cough [Unknown]
  - Headache [Unknown]
  - Somnolence [Unknown]
  - Insomnia [Unknown]
  - Restlessness [Unknown]
  - Blood pressure decreased [Unknown]
  - Dermatitis allergic [Unknown]
  - Eye disorder [Unknown]
  - Gait disturbance [Unknown]
  - Oedema peripheral [Unknown]
  - Diarrhoea [Unknown]
  - Skin discolouration [Unknown]
  - Dry mouth [Unknown]
  - Abdominal pain upper [Unknown]
  - Neck pain [Unknown]

NARRATIVE: CASE EVENT DATE: 20201009
